FAERS Safety Report 9836819 (Version 2)
Quarter: 2014Q1

REPORT INFORMATION
  Report Type: Spontaneous
  Country: US (occurrence: US)
  Receive Date: 20140123
  Receipt Date: 20140220
  Transmission Date: 20141002
  Serious: Yes (Other)
  Sender: FDA-Public Use
  Company Number: US-PFIZER INC-2014016108

PATIENT
  Age: 31 Year
  Sex: Male
  Weight: 54.42 kg

DRUGS (1)
  1. SOLU-MEDROL [Suspect]
     Indication: BRONCHITIS
     Dosage: 125 MG, SINGLE
     Route: 030
     Dates: start: 20140101, end: 20140101

REACTIONS (6)
  - Syncope [Unknown]
  - Pain [Unknown]
  - Asthenia [Unknown]
  - Dizziness [Unknown]
  - Pallor [Unknown]
  - Injection site pain [Recovered/Resolved]
